FAERS Safety Report 16668798 (Version 2)
Quarter: 2019Q3

REPORT INFORMATION
  Report Type: Spontaneous
  Country: US (occurrence: US)
  Receive Date: 20190805
  Receipt Date: 20190813
  Transmission Date: 20191004
  Serious: Yes (Disabling, Other)
  Sender: FDA-Public Use
  Company Number: US-HORIZON-DUE-0457-2019

PATIENT
  Age: 59 Year
  Sex: Female

DRUGS (1)
  1. DUEXIS [Suspect]
     Active Substance: FAMOTIDINE\IBUPROFEN
     Indication: SYNOVIAL CYST
     Dosage: 1 TAB 1 TO 2 TIMES A DAY
     Dates: start: 20190410, end: 20190726

REACTIONS (3)
  - Off label use [Unknown]
  - Intentional product use issue [Unknown]
  - Visual impairment [Recovering/Resolving]

NARRATIVE: CASE EVENT DATE: 201904
